FAERS Safety Report 26060181 (Version 1)
Quarter: 2025Q4

REPORT INFORMATION
  Report Type: Spontaneous
  Country: EU (occurrence: EU)
  Receive Date: 20251118
  Receipt Date: 20251118
  Transmission Date: 20260119
  Serious: Yes (Life-Threatening)
  Sender: FRESENIUS KABI
  Company Number: EU-FreseniusKabi-FK202515131

PATIENT
  Age: 48 Year
  Sex: Female
  Weight: 56 kg

DRUGS (1)
  1. PEMETREXED [Suspect]
     Active Substance: PEMETREXED
     Indication: Lung neoplasm
     Dosage: CHEMOTHERAPY ON 29-SEP-2025
     Route: 042

REACTIONS (5)
  - Chills [Unknown]
  - Headache [Unknown]
  - Vomiting [Unknown]
  - Cerebrovascular disorder [Unknown]
  - Fatigue [Unknown]

NARRATIVE: CASE EVENT DATE: 20251006
